FAERS Safety Report 10713219 (Version 1)
Quarter: 2015Q1

REPORT INFORMATION
  Report Type: Spontaneous
  Country: MX (occurrence: MX)
  Receive Date: 20150115
  Receipt Date: 20150115
  Transmission Date: 20150721
  Serious: Yes (Death)
  Sender: FDA-Public Use
  Company Number: MX-SA-2015SA004028

PATIENT
  Age: 69 Year
  Sex: Male

DRUGS (2)
  1. LANTUS SOLOSTAR [Suspect]
     Active Substance: INSULIN GLARGINE
     Route: 058
     Dates: end: 201412
  2. SOLOSTAR [Concomitant]
     Active Substance: DEVICE
     Dates: end: 201412

REACTIONS (1)
  - Death [Fatal]

NARRATIVE: CASE EVENT DATE: 201412
